FAERS Safety Report 10053307 (Version 1)
Quarter: 2014Q2

REPORT INFORMATION
  Report Type: Spontaneous
  Country: GB (occurrence: GB)
  Receive Date: 20140402
  Receipt Date: 20140402
  Transmission Date: 20141212
  Serious: Yes (Other)
  Sender: FDA-Public Use
  Company Number: GB-WATSON-2014-05989

PATIENT
  Age: 68 Year
  Sex: Female
  Weight: 89 kg

DRUGS (4)
  1. MIRTAZAPINE (UNKNOWN) [Suspect]
     Indication: INSOMNIA
     Dosage: 0.5 DF, UNK, HALF OF ONE TABLET (OF THE LOWEST DOSE STRENGTH OF MIRTAZAPINE)
     Route: 048
     Dates: start: 20140130, end: 20140131
  2. ASPIRIN [Concomitant]
     Indication: PRODUCT USED FOR UNKNOWN INDICATION
     Dosage: UNK
     Route: 065
  3. IBUPROFEN [Concomitant]
     Indication: PRODUCT USED FOR UNKNOWN INDICATION
     Dosage: UNK
     Route: 065
     Dates: end: 20091118
  4. PARACETAMOL [Concomitant]
     Indication: PRODUCT USED FOR UNKNOWN INDICATION
     Dosage: UNK
     Route: 065
     Dates: start: 20091118

REACTIONS (3)
  - Self-injurious ideation [Recovered/Resolved with Sequelae]
  - Psychotic disorder [Recovered/Resolved with Sequelae]
  - Psychomotor hyperactivity [Recovered/Resolved with Sequelae]
